FAERS Safety Report 4916777-2 (Version None)
Quarter: 2006Q1

REPORT INFORMATION
  Report Type: 
  Country: None (occurrence: None)
  Receive Date: 20060220
  Receipt Date: 20060131
  Transmission Date: 20060701
  Serious: Yes (Disabling)
  Sender: FDA-Public Use
  Company Number: BE-ROCHE-434290

PATIENT
  Age: 40 Year
  Sex: Female
  Weight: 54 kg

DRUGS (6)
  1. FUZEON [Suspect]
     Route: 058
     Dates: start: 20040429
  2. LAMIVUDINE [Concomitant]
     Dates: start: 20050615
  3. DIDANOSINE [Concomitant]
  4. TENOFOVIR [Concomitant]
  5. RITONAVIR [Concomitant]
  6. REYATAZ [Concomitant]

REACTIONS (6)
  - APPENDICITIS [None]
  - HERPES ZOSTER [None]
  - INJECTION SITE REACTION [None]
  - INTESTINAL OBSTRUCTION [None]
  - NAUSEA [None]
  - VERTIGO [None]
